FAERS Safety Report 7939253-1 (Version None)
Quarter: 2011Q4

REPORT INFORMATION
  Report Type: 
  Country: None (occurrence: None)
  Receive Date: 20111124
  Receipt Date: 20111111
  Transmission Date: 20120403
  Serious: Yes (Hospitalization)
  Sender: FDA-Public Use
  Company Number: PHHO2011NL14294

PATIENT
  Sex: Female
  Weight: 88.6 kg

DRUGS (4)
  1. MORPHINE [Suspect]
  2. METOPROLOL TARTRATE [Concomitant]
     Indication: HYPERTENSION
     Dosage: 50 MG, BID
     Dates: start: 20090101
  3. BEZ235 [Suspect]
     Indication: NEOPLASM MALIGNANT
     Dosage: 200 MG, QD
     Route: 048
     Dates: start: 20110531
  4. LYRICA [Suspect]
     Indication: PAIN
     Dosage: 75 MG, BID
     Dates: start: 20110601

REACTIONS (4)
  - WEIGHT DECREASED [None]
  - DEHYDRATION [None]
  - DIARRHOEA [None]
  - VOMITING [None]
